FAERS Safety Report 8818793 (Version 2)
Quarter: 2014Q3

REPORT INFORMATION
  Report Type: Report from Study
  Country: US (occurrence: US)
  Receive Date: 20121001
  Receipt Date: 20140922
  Transmission Date: 20150326
  Serious: No
  Sender: FDA-Public Use
  Company Number: US-ROCHE-1130020

PATIENT
  Age: 45 Year
  Sex: Female

DRUGS (4)
  1. HERCEPTIN [Suspect]
     Active Substance: TRASTUZUMAB
     Indication: BREAST CANCER STAGE II
     Dosage: LOADING DOSE
     Route: 042
     Dates: start: 199905
  2. VICODIN [Concomitant]
     Active Substance: ACETAMINOPHEN\HYDROCODONE BITARTRATE
  3. KEFLEX [Concomitant]
     Active Substance: CEPHALEXIN
     Route: 065
  4. HERCEPTIN [Suspect]
     Active Substance: TRASTUZUMAB
     Dosage: MAINTENANCE DOSE
     Route: 042

REACTIONS (18)
  - Pain [Unknown]
  - Pain in extremity [Recovering/Resolving]
  - Vaginal haemorrhage [Unknown]
  - Weight decreased [Unknown]
  - Cough [Unknown]
  - Pelvic pain [Unknown]
  - Pyrexia [Recovered/Resolved]
  - Breast mass [Unknown]
  - Neck mass [Recovering/Resolving]
  - Polymenorrhoea [Unknown]
  - Haemorrhage [Unknown]
  - Anal fissure [Unknown]
  - Dysplasia [Unknown]
  - Upper respiratory tract infection [Recovering/Resolving]
  - Rhinorrhoea [Unknown]
  - Nausea [Recovered/Resolved]
  - Decreased appetite [Recovered/Resolved]
  - Proctalgia [Unknown]

NARRATIVE: CASE EVENT DATE: 19990731
